FAERS Safety Report 5162828-2 (Version None)
Quarter: 2006Q4

REPORT INFORMATION
  Report Type: 
  Country: None (occurrence: None)
  Receive Date: 20061201
  Receipt Date: 20000718
  Transmission Date: 20070319
  Serious: Yes (Hospitalization)
  Sender: FDA-Public Use
  Company Number: FR-GLAXOSMITHKLINE-B0084651A

PATIENT
  Sex: Female
  Weight: 4.2 kg

DRUGS (7)
  1. RETROVIR [Suspect]
     Indication: ANTIVIRAL PROPHYLAXIS
     Route: 048
     Dates: start: 19990511
  2. ZIDOVUDINE [Suspect]
     Indication: HIV INFECTION
     Dates: end: 19990511
  3. ZIDOVUDINE [Suspect]
     Indication: ANTIVIRAL PROPHYLAXIS
     Route: 042
     Dates: start: 19990511, end: 19990511
  4. AMOXICILLIN [Concomitant]
     Indication: VAGINAL INFECTION
  5. IRON SALT [Concomitant]
  6. SPASFON [Concomitant]
  7. VITAMIN CAP [Concomitant]

REACTIONS (6)
  - ALANINE AMINOTRANSFERASE INCREASED [None]
  - ANAEMIA [None]
  - BLOOD CREATINE PHOSPHOKINASE INCREASED [None]
  - BLOOD LACTIC ACID INCREASED [None]
  - GINGIVAL DISORDER [None]
  - NEUTROPENIA [None]
